FAERS Safety Report 18620773 (Version 1)
Quarter: 2020Q4

REPORT INFORMATION
  Report Type: Spontaneous
  Country: RO (occurrence: RO)
  Receive Date: 20201215
  Receipt Date: 20201215
  Transmission Date: 20210114
  Serious: Yes (Other)
  Sender: FDA-Public Use
  Company Number: RO-ASTRAZENECA-2020SF65649

PATIENT
  Age: 70 Year
  Sex: Female

DRUGS (8)
  1. PERINDOPRIL [Concomitant]
     Active Substance: PERINDOPRIL
  2. TAGRISSO [Suspect]
     Active Substance: OSIMERTINIB
     Indication: LUNG CARCINOMA CELL TYPE UNSPECIFIED STAGE 0
     Route: 048
     Dates: start: 20190731
  3. TAGRISSO [Suspect]
     Active Substance: OSIMERTINIB
     Indication: EGFR GENE MUTATION
     Route: 048
     Dates: start: 20190731
  4. NEBILET [Concomitant]
     Active Substance: NEBIVOLOL
  5. TERTENSIF [Concomitant]
     Active Substance: INDAPAMIDE
  6. ASPENTER [Concomitant]
     Active Substance: ASPIRIN
  7. TAGRISSO [Suspect]
     Active Substance: OSIMERTINIB
     Indication: NON-SMALL CELL LUNG CANCER
     Route: 048
     Dates: start: 20190731
  8. SORTIS [Concomitant]
     Active Substance: ATORVASTATIN

REACTIONS (1)
  - Pericarditis [Unknown]
